FAERS Safety Report 6325596-4 (Version None)
Quarter: 2009Q3

REPORT INFORMATION
  Report Type: 
  Country: None (occurrence: None)
  Receive Date: 20090824
  Receipt Date: 20090813
  Transmission Date: 20100115
  Serious: Yes (Hospitalization)
  Sender: FDA-Public Use
  Company Number: PHHO2009TW10035

PATIENT
  Sex: Male
  Weight: 53 kg

DRUGS (1)
  1. RAD 666 RAD+TAB+CMAS [Suspect]
     Indication: PANCREATIC NEUROENDOCRINE TUMOUR
     Dosage: BROKEN
     Dates: start: 20090114, end: 20090630

REACTIONS (1)
  - HEPATIC NECROSIS [None]
